FAERS Safety Report 7827279-8 (Version None)
Quarter: 2011Q4

REPORT INFORMATION
  Report Type: 
  Country: None (occurrence: None)
  Receive Date: 20111020
  Receipt Date: 20111014
  Transmission Date: 20120403
  Serious: Yes (Other)
  Sender: FDA-Public Use
  Company Number: US-PFIZER INC-2011246934

PATIENT
  Sex: Female
  Weight: 58.96 kg

DRUGS (3)
  1. GABAPENTIN [Suspect]
     Indication: BURNING SENSATION
  2. LISINOPRIL [Concomitant]
     Indication: HYPERTENSION
     Dosage: 40 MG, DAILY
  3. GABAPENTIN [Suspect]
     Indication: PAIN
     Dosage: 400 MG, EVERY FOUR HOURS
     Dates: start: 20090101, end: 20110401

REACTIONS (2)
  - INCONTINENCE [None]
  - DISTURBANCE IN ATTENTION [None]
